FAERS Safety Report 11642483 (Version 1)
Quarter: 2015Q4

REPORT INFORMATION
  Report Type: Report from Study
  Country: US (occurrence: US)
  Receive Date: 20151019
  Receipt Date: 20151019
  Transmission Date: 20160304
  Serious: Yes (Hospitalization)
  Sender: FDA-Public Use
  Company Number: US-AMGEN-USASL2015107451

PATIENT
  Sex: Female

DRUGS (1)
  1. ENBREL [Suspect]
     Active Substance: ETANERCEPT
     Indication: RHEUMATOID ARTHRITIS
     Dosage: 50 MG, QWK
     Route: 065
     Dates: start: 201106

REACTIONS (7)
  - Intestinal obstruction [Unknown]
  - Intestinal perforation [Unknown]
  - Arthritis [Unknown]
  - Weight increased [Unknown]
  - Mobility decreased [Unknown]
  - Vaginal discharge [Recovered/Resolved]
  - Alopecia [Recovered/Resolved]
